FAERS Safety Report 15095160 (Version 2)
Quarter: 2018Q4

REPORT INFORMATION
  Report Type: Spontaneous
  Country: JP (occurrence: JP)
  Receive Date: 20180702
  Receipt Date: 20181018
  Transmission Date: 20190204
  Serious: Yes (Death, Other)
  Sender: FDA-Public Use
  Company Number: JP-009507513-1806JPN002759J

PATIENT

DRUGS (1)
  1. KEYTRUDA [Suspect]
     Active Substance: PEMBROLIZUMAB
     Indication: LUNG NEOPLASM MALIGNANT
     Dosage: UNK
     Route: 041

REACTIONS (7)
  - Pneumocystis jirovecii pneumonia [Fatal]
  - Infusion related reaction [Unknown]
  - Adrenal insufficiency [Unknown]
  - Rash [Unknown]
  - Thyroid function test abnormal [Unknown]
  - Hepatic function abnormal [Unknown]
  - Interstitial lung disease [Unknown]
